FAERS Safety Report 9774434 (Version 2)
Quarter: 2013Q4

REPORT INFORMATION
  Report Type: Report from Study
  Country: GB (occurrence: GB)
  Receive Date: 20131220
  Receipt Date: 20131227
  Transmission Date: 20140711
  Serious: Yes (Hospitalization, Disabling, Other)
  Sender: FDA-Public Use
  Company Number: GB-MERCK-1312GBR007210

PATIENT
  Age: 68 Year
  Sex: Female

DRUGS (2)
  1. VORINOSTAT [Suspect]
     Indication: PLASMA CELL MYELOMA
     Dosage: 300 MG, ON DAYS 1-7  AND DAYS 15 - 21
     Route: 048
     Dates: start: 20121116
  2. LENALIDOMIDE [Suspect]
     Indication: PLASMA CELL MYELOMA
     Dosage: 10 MG, DAYS 1-21.
     Route: 048
     Dates: start: 20121116

REACTIONS (1)
  - Femur fracture [Not Recovered/Not Resolved]
